FAERS Safety Report 5068384-1 (Version None)
Quarter: 2006Q3

REPORT INFORMATION
  Report Type: 
  Country: None (occurrence: None)
  Receive Date: 20060802
  Receipt Date: 20050830
  Transmission Date: 20061208
  Serious: No
  Sender: FDA-Public Use
  Company Number: US-BRISTOL-MYERS SQUIBB COMPANY-13095161

PATIENT
  Age: 56 Year
  Sex: Female
  Weight: 86 kg

DRUGS (2)
  1. WARFARIN SODIUM [Suspect]
  2. IMODIUM [Interacting]
     Indication: DIARRHOEA
     Route: 048
     Dates: start: 20050716

REACTIONS (3)
  - DRUG INTERACTION [None]
  - DYSGEUSIA [None]
  - MALAISE [None]
